FAERS Safety Report 13096506 (Version 1)
Quarter: 2017Q1

REPORT INFORMATION
  Report Type: Spontaneous
  Country: US (occurrence: US)
  Receive Date: 20170109
  Receipt Date: 20170109
  Transmission Date: 20170428
  Serious: No
  Sender: FDA-Public Use
  Company Number: US-BRISTOL-MYERS SQUIBB COMPANY-BMS-2017-000274

PATIENT
  Sex: Male
  Weight: 104 kg

DRUGS (2)
  1. OPDIVO [Suspect]
     Active Substance: NIVOLUMAB
     Indication: LUNG CARCINOMA CELL TYPE UNSPECIFIED STAGE IV
     Dosage: 1 DF, Q2WK
     Route: 042
     Dates: start: 2015, end: 201606
  2. LIALDA [Concomitant]
     Active Substance: MESALAMINE
     Indication: FUNCTIONAL GASTROINTESTINAL DISORDER
     Dosage: 2 DF, QID
     Route: 065

REACTIONS (2)
  - Off label use [Unknown]
  - Pain in extremity [Unknown]
